FAERS Safety Report 9343000 (Version 4)
Quarter: 2014Q2

REPORT INFORMATION
  Report Type: Spontaneous
  Country: US (occurrence: US)
  Receive Date: 20130611
  Receipt Date: 20140409
  Transmission Date: 20141212
  Serious: Yes (Hospitalization)
  Sender: FDA-Public Use
  Company Number: US-B.I. PHARMACEUTICALS,INC./RIDGEFIELD-2013-BI-16109BP

PATIENT
  Sex: Female
  Weight: 72.57 kg

DRUGS (13)
  1. PRADAXA [Suspect]
     Indication: CEREBROVASCULAR ACCIDENT PROPHYLAXIS
     Route: 065
     Dates: start: 20110218
  2. PRADAXA [Suspect]
     Indication: THROMBOSIS PROPHYLAXIS
  3. COUMADIN [Suspect]
     Indication: PRODUCT USED FOR UNKNOWN INDICATION
     Dosage: 8 MG
     Route: 048
     Dates: end: 20130313
  4. TENORMIN [Concomitant]
     Dosage: 50 MG
     Route: 048
     Dates: start: 2004
  5. PAXIL [Concomitant]
     Dosage: 20 MG
     Route: 048
     Dates: start: 2006
  6. FEXOFENADINE [Concomitant]
     Route: 065
  7. OMEPRAZOLE [Concomitant]
     Route: 065
  8. XANAX [Concomitant]
     Dosage: 1 MG
     Route: 048
  9. LIORESAL [Concomitant]
     Dosage: 30 MG
     Route: 048
  10. KEPPRA [Concomitant]
     Dosage: 2250 MG
     Route: 048
  11. IMODIUM [Concomitant]
     Indication: DIARRHOEA
     Dosage: 2 MG
     Route: 048
  12. AMBIEN [Concomitant]
     Indication: INSOMNIA
     Dosage: 10 MG
     Route: 048
  13. ALLEGRA [Concomitant]
     Route: 065

REACTIONS (4)
  - Gastrointestinal haemorrhage [Unknown]
  - Haemorrhagic anaemia [Unknown]
  - Chest pain [Unknown]
  - Diarrhoea [Unknown]
